FAERS Safety Report 7473507-0 (Version None)
Quarter: 2011Q2

REPORT INFORMATION
  Report Type: 
  Country: None (occurrence: None)
  Receive Date: 20110511
  Receipt Date: 20110504
  Transmission Date: 20111010
  Serious: Yes (Other)
  Sender: FDA-Public Use
  Company Number: BR-PFIZER INC-2009201518

PATIENT
  Age: 54 Year
  Sex: Female
  Weight: 76 kg

DRUGS (1)
  1. SUTENT [Suspect]
     Indication: RENAL CANCER
     Dosage: 37.5 MG (1 CAPSULE OF 25 MG PLUS 1 CAPSULE OF 12. 5 MG  DURING 28 DAYS WITH INTERVALS OF 14 DAYS)
     Route: 048
     Dates: start: 20080801

REACTIONS (5)
  - HYPERSENSITIVITY [None]
  - CALCIFICATION METASTATIC [None]
  - BLOOD PRESSURE INCREASED [None]
  - CARDIAC DISORDER [None]
  - ERYTHEMA [None]
